FAERS Safety Report 25678465 (Version 1)
Quarter: 2025Q3

REPORT INFORMATION
  Report Type: Spontaneous
  Country: GB (occurrence: GB)
  Receive Date: 20250813
  Receipt Date: 20250813
  Transmission Date: 20251021
  Serious: Yes (Other)
  Sender: DAIICHI
  Company Number: GB-DSJP-DS-2025-157766-GB

PATIENT
  Sex: Female

DRUGS (1)
  1. ENHERTU [Suspect]
     Active Substance: FAM-TRASTUZUMAB DERUXTECAN-NXKI
     Indication: Neoplasm malignant
     Route: 065

REACTIONS (7)
  - Metastases to bone [Unknown]
  - Metastases to central nervous system [Unknown]
  - Metastases to spine [Unknown]
  - Psychiatric symptom [Unknown]
  - Illness [Unknown]
  - Nausea [Unknown]
  - Fatigue [Unknown]
